FAERS Safety Report 13638817 (Version 1)
Quarter: 2017Q2

REPORT INFORMATION
  Report Type: Spontaneous
  Country: GB (occurrence: GB)
  Receive Date: 20170609
  Receipt Date: 20170609
  Transmission Date: 20170830
  Serious: Yes (Other)
  Sender: FDA-Public Use
  Company Number: GB-BAYER-2017-110085

PATIENT
  Sex: Female

DRUGS (1)
  1. CIPROXIN 400/200 MG/ML [Suspect]
     Active Substance: CIPROFLOXACIN
     Dosage: 400 MG, BID
     Route: 041
     Dates: start: 2002, end: 2002

REACTIONS (2)
  - Hypoglycaemia [None]
  - Glomerular filtration rate decreased [None]

NARRATIVE: CASE EVENT DATE: 2002
